FAERS Safety Report 8802675 (Version 3)
Quarter: 2013Q1

REPORT INFORMATION
  Report Type: Spontaneous
  Country: US (occurrence: US)
  Receive Date: 20120921
  Receipt Date: 20130313
  Transmission Date: 20140127
  Serious: No
  Sender: FDA-Public Use
  Company Number: US-PFIZER INC-2012187271

PATIENT
  Age: 49 Year
  Sex: Female

DRUGS (45)
  1. LYRICA [Suspect]
     Dosage: 150 MG, 2X/DAY (AT BREAKFAST AND SUPPER)
  2. LYRICA [Suspect]
     Dosage: 200 MG DAILY (AT LUNCH)
  3. LIPITOR [Suspect]
     Dosage: 80 MG, 1X/DAY
  4. VISTARIL [Suspect]
     Dosage: 50 MG, 3X/DAY
  5. LIPITOR [Concomitant]
     Dosage: 80 MG, 1X/DAY
  6. CALAN [Concomitant]
     Dosage: 120 MG, 2X/DAY
  7. PROTONIX [Concomitant]
     Dosage: 40 MG, 1X/DAY
  8. METFORMIN [Concomitant]
     Dosage: 1000 MG, 2X/DAY
  9. NOVOLOG 70/30 [Concomitant]
     Dosage: 50 IU, UNK (50U 15 MINUTES BEFORE BRKFST AND SUPPER)
  10. ASA [Concomitant]
     Dosage: 81 MG, 1X/DAY (Q AM)
  11. HCTZ [Concomitant]
     Dosage: 25 MG, 1X/DAY (Q AM)
  12. LISINOPRIL [Concomitant]
     Dosage: 10 MG, QHS
  13. LISINOPRIL [Concomitant]
     Dosage: 20 MG, 1X/DAY (QAM)
  14. VITAMIN D [Concomitant]
     Dosage: 2000 MG, 1X/DAY
  15. VITAMIN D [Concomitant]
     Dosage: 2000 UG, 1X/DAY (QAM)
  16. MAGNESIUM [Concomitant]
     Dosage: UNK (4 TABLETS PER DAY, 2IN AM 2IN PM)
  17. MAGNESIUM [Concomitant]
     Dosage: 800 MG, 2X/DAY (3 PILLS)
  18. REMERON [Concomitant]
     Dosage: 45 MG, QHS
  19. NAFTIN [Concomitant]
     Indication: FUNGAL INFECTION
     Dosage: 1 %, 2X/DAY (1% CREAM ON BOTH FEET BID)
  20. OXYCODONE [Concomitant]
     Indication: PAIN
     Dosage: 15 MG, 3X/DAY
  21. ZANAFLEX [Concomitant]
     Indication: FIBROMYALGIA
     Dosage: 4 MG, 3X/DAY
  22. ZANAFLEX [Concomitant]
     Indication: BACK PAIN
  23. ZANAFLEX [Concomitant]
     Indication: MIGRAINE
  24. ALBUTEROL [Concomitant]
     Indication: WHEEZING
     Dosage: 90 UG, AS NEEDED (PRN 2 PUFFS)
  25. ALBUTEROL [Concomitant]
     Indication: CHEST DISCOMFORT
  26. VISTARIL [Concomitant]
     Indication: ANXIETY
     Dosage: 50 MG, 3X/DAY
  27. LACTULOSE [Concomitant]
     Indication: CONSTIPATION
     Dosage: 30 ML, 2X/DAY (30 ML BID PRN)
  28. AMBIEN [Concomitant]
     Indication: SLEEP DISORDER
     Dosage: 10 MG, AS NEEDED (QHS PRN)
  29. FIORICET [Concomitant]
     Indication: MIGRAINE
     Dosage: UNK AS NEEDED (1-2 AT ONSET, MAY REPEAT IN 4-6 HOURS, NOT TO EXCEED 4/ DAY, 8 PER WEEK)
  30. DICLOFENAC NA [Concomitant]
     Indication: HEADACHE
     Dosage: 75 MG, (ONE AT ONSET OF H/A, MAY REPEAT X 1, MAX 2/D; 4/WEEK)
  31. COMPAZINE [Concomitant]
     Indication: NAUSEA
     Dosage: 10 MG, EVERY 4 HRS (Q 4HR)
  32. COMPAZINE [Concomitant]
     Indication: VOMITING
  33. ANALPRAM-HC [Concomitant]
     Dosage: UNK (2.5%-1% USE AS DIRECTED)
  34. LIDOCAINE [Concomitant]
     Dosage: 2.5 %, (Q 12 HRS)
  35. PRILOCAINE [Concomitant]
     Indication: MIGRAINE
     Dosage: 2.5 %, 2X/DAY (Q 12 HRS)
  36. MS CONTIN [Concomitant]
     Dosage: 15 MG, 2X/DAY
  37. LANTUS [Concomitant]
     Dosage: 50 UG, 1X/DAY (QPM)
  38. NEXIUM [Concomitant]
     Dosage: 40 MG, 2X/DAY
  39. VENTOLIN [Concomitant]
     Indication: WHEEZING
     Dosage: UNK
  40. VENTOLIN [Concomitant]
     Indication: CHEST DISCOMFORT
  41. HUMALOG [Concomitant]
     Dosage: 100 U/ML WHEN NEEDED
  42. MIDRIN [Concomitant]
     Indication: MIGRAINE
  43. ZOFRAN [Concomitant]
     Indication: NAUSEA
     Dosage: 4 MG, 1X/DAY (Q 6 HRS)
  44. ZOFRAN [Concomitant]
     Indication: VOMITING
  45. LIDODERM PATCH [Concomitant]
     Indication: BACK DISORDER
     Dosage: 5 %, UNK

REACTIONS (1)
  - Dizziness [Unknown]
